FAERS Safety Report 10532751 (Version 7)
Quarter: 2016Q2

REPORT INFORMATION
  Report Type: Report from Study
  Country: CA (occurrence: CA)
  Receive Date: 20141021
  Receipt Date: 20160527
  Transmission Date: 20160815
  Serious: Yes (Other)
  Sender: FDA-Public Use
  Company Number: CA-ROCHE-1177736

PATIENT
  Age: 55 Year
  Sex: Female
  Weight: 73 kg

DRUGS (14)
  1. ELAVIL [Concomitant]
     Active Substance: AMITRIPTYLINE HYDROCHLORIDE
  2. PREDNISONE. [Concomitant]
     Active Substance: PREDNISONE
  3. SPIRIVA [Concomitant]
     Active Substance: TIOTROPIUM BROMIDE MONOHYDRATE
  4. VITAMIN B12 [Concomitant]
     Active Substance: CYANOCOBALAMIN
  5. TOCILIZUMAB [Suspect]
     Active Substance: TOCILIZUMAB
     Indication: RHEUMATOID ARTHRITIS
     Route: 042
     Dates: start: 20120717
  6. TOCILIZUMAB [Suspect]
     Active Substance: TOCILIZUMAB
     Route: 042
     Dates: start: 20121116, end: 20160519
  7. NEXIUM [Concomitant]
     Active Substance: ESOMEPRAZOLE MAGNESIUM
  8. PAXIL (CANADA) [Concomitant]
  9. ZOPICLONE [Concomitant]
     Active Substance: ZOPICLONE
  10. DEMEROL [Concomitant]
     Active Substance: MEPERIDINE HYDROCHLORIDE
  11. CELEBREX [Concomitant]
     Active Substance: CELECOXIB
  12. VENTOLIN [Concomitant]
     Active Substance: ALBUTEROL SULFATE
  13. DOMPERIDONE [Concomitant]
     Active Substance: DOMPERIDONE
  14. SULPHASALAZINE [Concomitant]
     Active Substance: SULFASALAZINE

REACTIONS (12)
  - Bronchitis [Unknown]
  - Sinusitis [Recovering/Resolving]
  - Weight increased [Not Recovered/Not Resolved]
  - Rheumatoid nodule [Unknown]
  - Sinusitis [Not Recovered/Not Resolved]
  - Drug ineffective [Unknown]
  - Incision site infection [Unknown]
  - Carpal tunnel syndrome [Unknown]
  - Labile blood pressure [Unknown]
  - Arthropathy [Unknown]
  - Urinary incontinence [Unknown]
  - Infection [Unknown]

NARRATIVE: CASE EVENT DATE: 201212
